FAERS Safety Report 7072275-4 (Version None)
Quarter: 2010Q4

REPORT INFORMATION
  Report Type: 
  Country: None (occurrence: None)
  Receive Date: 20101029
  Receipt Date: 20091229
  Transmission Date: 20110411
  Serious: No
  Sender: FDA-Public Use
  Company Number: A0837224A

PATIENT
  Sex: Female

DRUGS (5)
  1. ADVAIR DISKUS 100/50 [Suspect]
     Route: 055
     Dates: start: 20091212, end: 20091229
  2. ALBUTEROL [Concomitant]
  3. NEBULIZER [Concomitant]
  4. FLUTICASONE PROPIONATE [Concomitant]
  5. OXYGEN [Concomitant]

REACTIONS (3)
  - APHONIA [None]
  - OEDEMA PERIPHERAL [None]
  - RASH [None]
